FAERS Safety Report 4327683-9 (Version None)
Quarter: 2004Q1

REPORT INFORMATION
  Report Type: 
  Country: None (occurrence: None)
  Receive Date: 20040331
  Receipt Date: 20030326
  Transmission Date: 20041129
  Serious: No
  Sender: FDA-Public Use
  Company Number: US-GLAXOSMITHKLINE-A0402035A

PATIENT
  Age: 11 Year
  Sex: Female

DRUGS (1)
  1. COMPAZINE [Suspect]
     Indication: NAUSEA
     Route: 030
     Dates: start: 20030301

REACTIONS (3)
  - CHEST DISCOMFORT [None]
  - DRY MOUTH [None]
  - SEDATION [None]
